FAERS Safety Report 6266942-X (Version None)
Quarter: 2009Q3

REPORT INFORMATION
  Report Type: 
  Country: None (occurrence: None)
  Receive Date: 20090714
  Receipt Date: 20080317
  Transmission Date: 20100115
  Serious: Yes (Life-Threatening, Hospitalization, Other)
  Sender: FDA-Public Use
  Company Number: US-ASTRAZENECA-2007UW14128

PATIENT
  Age: 910 Month
  Sex: Female
  Weight: 63 kg

DRUGS (1)
  1. ARIMIDEX [Suspect]
     Indication: BREAST CANCER
     Route: 048
     Dates: start: 19980514, end: 19991003

REACTIONS (2)
  - ENDOMETRIAL SARCOMA [None]
  - VAGINAL HAEMORRHAGE [None]
